FAERS Safety Report 13145368 (Version 7)
Quarter: 2017Q1

REPORT INFORMATION
  Report Type: Report from Study
  Country: LB (occurrence: LB)
  Receive Date: 20170124
  Receipt Date: 20170317
  Transmission Date: 20170428
  Serious: Yes (Hospitalization, Other)
  Sender: FDA-Public Use
  Company Number: PHHY2017LB007514

PATIENT
  Age: 42 Year
  Sex: Male

DRUGS (5)
  1. DUSPATALIN [Concomitant]
     Active Substance: MEBEVERINE HYDROCHLORIDE
     Indication: PRODUCT USED FOR UNKNOWN INDICATION
     Route: 048
     Dates: start: 201701
  2. GYNO TARDYFERON [Concomitant]
     Indication: PRODUCT USED FOR UNKNOWN INDICATION
     Route: 048
     Dates: start: 201701
  3. PANTOMAX [Concomitant]
     Indication: PRODUCT USED FOR UNKNOWN INDICATION
     Route: 048
     Dates: start: 201701
  4. TASIGNA [Suspect]
     Active Substance: NILOTINIB
     Indication: CHRONIC MYELOID LEUKAEMIA
     Dosage: 600 MG, QD
     Route: 048
     Dates: start: 201612, end: 201703
  5. DUPHALAC [Concomitant]
     Active Substance: LACTULOSE
     Indication: PRODUCT USED FOR UNKNOWN INDICATION
     Route: 048
     Dates: start: 201701

REACTIONS (13)
  - Haemoglobin decreased [Unknown]
  - Anaemia [Not Recovered/Not Resolved]
  - Nephrolithiasis [Unknown]
  - Pain [Unknown]
  - Abdominal distension [Not Recovered/Not Resolved]
  - Vomiting [Unknown]
  - Irritable bowel syndrome [Unknown]
  - Malaise [Unknown]
  - Cyst [Not Recovered/Not Resolved]
  - Infection [Unknown]
  - Haemorrhoids [Not Recovered/Not Resolved]
  - Abdominal pain [Recovering/Resolving]
  - Haematocrit decreased [Unknown]

NARRATIVE: CASE EVENT DATE: 20170115
